FAERS Safety Report 25524921 (Version 1)
Quarter: 2025Q3

REPORT INFORMATION
  Report Type: Spontaneous
  Country: EU (occurrence: EU)
  Receive Date: 20250707
  Receipt Date: 20250707
  Transmission Date: 20251020
  Serious: Yes (Hospitalization, Disabling, Other)
  Sender: SANDOZ
  Company Number: EU-Clinigen Group PLC/ Clinigen Healthcare Ltd-DE-CLGN-22-00006

PATIENT
  Age: 59 Year
  Sex: Female
  Weight: 107.5 kg

DRUGS (3)
  1. CYCLOPHOSPHAMIDE [Suspect]
     Active Substance: CYCLOPHOSPHAMIDE
     Indication: Metastatic malignant melanoma
     Dosage: UNK, QD
     Route: 058
     Dates: start: 20190917, end: 20190918
  2. FLUDARABINE [Suspect]
     Active Substance: FLUDARABINE PHOSPHATE
     Indication: Metastatic malignant melanoma
     Dosage: UNK, QD
     Route: 065
     Dates: start: 20190919, end: 20190923
  3. PROLEUKIN [Suspect]
     Active Substance: ALDESLEUKIN
     Indication: Metastatic malignant melanoma
     Route: 042
     Dates: start: 20190924, end: 20190926

REACTIONS (4)
  - Cytokine release syndrome [Recovered/Resolved]
  - Capillary leak syndrome [Recovered/Resolved]
  - Blood pressure decreased [Recovered/Resolved]
  - Pulmonary oedema [Recovered/Resolved]

NARRATIVE: CASE EVENT DATE: 20190924
